FAERS Safety Report 8563358-8 (Version None)
Quarter: 2012Q3

REPORT INFORMATION
  Report Type: 
  Country: None (occurrence: None)
  Receive Date: 20120802
  Receipt Date: 20120730
  Transmission Date: 20120928
  Serious: No
  Sender: FDA-Public Use
  Company Number: US-AMGEN-USASP2012047517

PATIENT
  Sex: Female

DRUGS (1)
  1. ENBREL [Suspect]
     Indication: RHEUMATOID ARTHRITIS
     Dosage: 50 MG, QWK
     Dates: start: 20050101, end: 20120703

REACTIONS (9)
  - FIBULA FRACTURE [None]
  - ARTHRALGIA [None]
  - JOINT SWELLING [None]
  - ARTHRITIS [None]
  - INJECTION SITE URTICARIA [None]
  - TIBIA FRACTURE [None]
  - EXOSTOSIS [None]
  - INJECTION SITE PRURITUS [None]
  - FALL [None]
